FAERS Safety Report 10011579 (Version 1)
Quarter: 2014Q1

REPORT INFORMATION
  Report Type: Not Available
  Country: CZ (occurrence: CZ)
  Receive Date: 20140314
  Receipt Date: 20140314
  Transmission Date: 20141002
  Serious: Yes (Hospitalization, Other)
  Sender: FDA-Public Use
  Company Number: CZ-BEH-2014041071

PATIENT
  Age: 3 Year
  Sex: Male

DRUGS (6)
  1. PRIVIGEN [Suspect]
     Indication: IMMUNE THROMBOCYTOPENIC PURPURA
     Route: 042
     Dates: start: 20140210, end: 20140212
  2. KLACID [Concomitant]
  3. NASIVIN [Concomitant]
  4. MUCOSOLVAN [Concomitant]
  5. AERIUS [Concomitant]
  6. SINGULAIR [Concomitant]

REACTIONS (4)
  - Haemolytic anaemia [Recovered/Resolved]
  - Platelet count decreased [Unknown]
  - Haemoglobin decreased [Unknown]
  - Anaemia [Unknown]
